FAERS Safety Report 21802614 (Version 1)
Quarter: 2022Q4

REPORT INFORMATION
  Report Type: Spontaneous
  Country: FR (occurrence: FR)
  Receive Date: 20221231
  Receipt Date: 20221231
  Transmission Date: 20230113
  Serious: Yes (Hospitalization)
  Sender: FDA-Public Use
  Company Number: None

PATIENT
  Age: 73 Year
  Sex: Female
  Weight: 72.6 kg

DRUGS (2)
  1. LETROZOLE [Suspect]
     Active Substance: LETROZOLE
     Indication: Breast cancer
     Dosage: THERAPY END DATE : NASK, FREQUENCY TIME : 1 DAY, UNIT DOSE : 2.5 MG
     Route: 065
     Dates: start: 20220303
  2. KISQALI [Suspect]
     Active Substance: RIBOCICLIB
     Indication: Breast cancer
     Dosage: 21D/28D, STRENGTH: 200 MG, UNIT DOSE : 600 MG, DURATION : 239 DAYS
     Dates: start: 20220314, end: 20221108

REACTIONS (1)
  - Renal tubular necrosis [Not Recovered/Not Resolved]

NARRATIVE: CASE EVENT DATE: 20221104
